FAERS Safety Report 13854801 (Version 1)
Quarter: 2017Q3

REPORT INFORMATION
  Report Type: Report from Study
  Country: GB (occurrence: GB)
  Receive Date: 20170810
  Receipt Date: 20170810
  Transmission Date: 20171127
  Serious: Yes (Other)
  Sender: FDA-Public Use
  Company Number: GB-SA-2016SA052090

PATIENT
  Age: 41 Year
  Sex: Male
  Weight: 52.6 kg

DRUGS (7)
  1. AZD6244 [Suspect]
     Active Substance: SELUMETINIB
     Indication: MEDULLARY THYROID CANCER
     Route: 048
     Dates: start: 20130422, end: 20130428
  2. PAMIDRONATE [Concomitant]
     Active Substance: PAMIDRONATE DISODIUM
     Dosage: AS REQUIRED
  3. MORPHINE SULFATE. [Concomitant]
     Active Substance: MORPHINE SULFATE
  4. VANDETANIB. [Suspect]
     Active Substance: VANDETANIB
     Indication: MEDULLARY THYROID CANCER
     Route: 048
     Dates: start: 20130408, end: 20130428
  5. VANDETANIB. [Suspect]
     Active Substance: VANDETANIB
     Indication: METASTASIS
     Route: 048
     Dates: start: 20130408, end: 20130428
  6. AZD6244 [Suspect]
     Active Substance: SELUMETINIB
     Indication: METASTASIS
     Route: 048
     Dates: start: 20130422, end: 20130428
  7. THYROXIN [Concomitant]
     Active Substance: LEVOTHYROXINE

REACTIONS (1)
  - Bradycardia [Recovered/Resolved]

NARRATIVE: CASE EVENT DATE: 20130422
